FAERS Safety Report 16687787 (Version 9)
Quarter: 2020Q3

REPORT INFORMATION
  Report Type: Spontaneous
  Country: US (occurrence: US)
  Receive Date: 20190809
  Receipt Date: 20200813
  Transmission Date: 20201102
  Serious: Yes (Other)
  Sender: FDA-Public Use
  Company Number: US-PFIZER INC-2019341379

PATIENT
  Age: 69 Year
  Sex: Female
  Weight: 68 kg

DRUGS (13)
  1. IBRANCE [Suspect]
     Active Substance: PALBOCICLIB
     Dosage: 75 MG
  2. IBRANCE [Suspect]
     Active Substance: PALBOCICLIB
     Indication: BREAST CANCER FEMALE
     Dosage: 100 MG, CYCLIC (21 DAYS ON, 7 DAYS OFF)
     Route: 048
     Dates: start: 20190405, end: 2019
  3. BENAZEPRIL HCT [Concomitant]
     Dosage: 20 MG, DAILY
     Route: 048
  4. ONE A DAY WOMEN^S [Concomitant]
     Active Substance: MINERALS\VITAMINS
     Dosage: UNK
     Route: 048
  5. CLOTRIMAZOLE. [Concomitant]
     Active Substance: CLOTRIMAZOLE
     Dosage: UNK, 2X/DAY
     Route: 061
  6. FASLODEX [Concomitant]
     Active Substance: FULVESTRANT
     Dosage: 2 X 250 MG, MONTHLY
     Dates: start: 201808
  7. ALPHA LIPOIC ACID [Concomitant]
     Active Substance: .ALPHA.-LIPOIC ACID
     Dosage: 600 MG, DAILY
     Route: 048
  8. INSULIN [Concomitant]
     Active Substance: INSULIN NOS
     Indication: DIABETES MELLITUS
     Dosage: UNK
     Dates: start: 2015
  9. CALTRATE [Concomitant]
     Active Substance: CALCIUM CARBONATE
     Dosage: 1 DF, DAILY
     Route: 048
     Dates: start: 2011
  10. GLUCOSAMINE CHONDROITIN JOINT FOOD [Concomitant]
     Dosage: UNK, DAILY
     Route: 048
  11. LANTUS [Concomitant]
     Active Substance: INSULIN GLARGINE
     Dosage: 16 UNITS (OF 100 UNITS/ML), DAILY
     Route: 058
  12. MAGNESIUM [Concomitant]
     Active Substance: MAGNESIUM
     Dosage: 250 MG, DAILY
     Route: 048
  13. VITAMIN D3 [Concomitant]
     Active Substance: CHOLECALCIFEROL
     Dosage: 1 DF, DAILY
     Route: 048

REACTIONS (7)
  - Thrombocytopenia [Recovered/Resolved]
  - Pneumonia [Unknown]
  - Cough [Unknown]
  - White blood cell count decreased [Not Recovered/Not Resolved]
  - Neutropenia [Unknown]
  - Visual acuity reduced [Unknown]
  - Photosensitivity reaction [Unknown]

NARRATIVE: CASE EVENT DATE: 2019
